FAERS Safety Report 22626313 (Version 1)
Quarter: 2023Q2

REPORT INFORMATION
  Report Type: Spontaneous
  Country: US (occurrence: None)
  Receive Date: 20230619
  Receipt Date: 20230619
  Transmission Date: 20230722
  Serious: No
  Sender: FDA-Public Use
  Company Number: None

PATIENT
  Age: 69 Year

DRUGS (1)
  1. CYCLOSPORINE [Suspect]
     Active Substance: CYCLOSPORINE
     Indication: Dry eye
     Dosage: OTHER QUANTITY : 1 DROP INTO R+L EY;?FREQUENCY : TWICE A DAY;?
     Route: 047
     Dates: start: 202207, end: 2023

REACTIONS (2)
  - Lacrimation increased [None]
  - Dry eye [None]

NARRATIVE: CASE EVENT DATE: 20220101
